FAERS Safety Report 5210499-9 (Version None)
Quarter: 2007Q1

REPORT INFORMATION
  Report Type: 
  Country: None (occurrence: None)
  Receive Date: 20070117
  Receipt Date: 20070117
  Transmission Date: 20070707
  Serious: Yes (Death)
  Sender: FDA-Public Use
  Company Number: None

PATIENT
  Age: 86 Year
  Sex: Male
  Weight: 68.9467 kg

DRUGS (1)
  1. SPIRIVA [Suspect]
     Indication: DYSPNOEA
     Dosage: 1 TREATMENT MORNING
     Dates: start: 20060803, end: 20061005

REACTIONS (4)
  - ANURIA [None]
  - CONSTIPATION [None]
  - DRY MOUTH [None]
  - THIRST [None]
